FAERS Safety Report 8376682-9 (Version None)
Quarter: 2012Q2

REPORT INFORMATION
  Report Type: 
  Country: None (occurrence: None)
  Receive Date: 20120518
  Receipt Date: 20120507
  Transmission Date: 20120825
  Serious: Yes (Death, Hospitalization, Congenital Anomaly, Other)
  Sender: FDA-Public Use
  Company Number: AUR-APL-2012-02227

PATIENT
  Age: 0 Year
  Sex: Female
  Weight: 2.965 kg

DRUGS (9)
  1. FOLIO FORTE [Concomitant]
  2. KADEFUNGIN (CLOTRIMAZOLE) [Concomitant]
  3. LEVOTHYROXINE SODIUM [Concomitant]
  4. CITIRIZIN (CETIRIZINE) [Concomitant]
  5. UTROGEST (PROGESTERONE) [Concomitant]
  6. APSOMOL (SALBUTAMOL) [Concomitant]
  7. EBENOL (HYDROCORTISONE ACETATE) [Concomitant]
  8. EMSER SALT (EMSER SALT) [Concomitant]
  9. METFORMIN HCL [Suspect]
     Indication: GLUCOSE TOLERANCE IMPAIRED
     Dosage: TRANSPLACENTAL
     Route: 064

REACTIONS (10)
  - CAESAREAN SECTION [None]
  - HYPOPLASTIC LEFT HEART SYNDROME [None]
  - LOW BIRTH WEIGHT BABY [None]
  - BLOOD PRESSURE DECREASED [None]
  - PREMATURE RUPTURE OF MEMBRANES [None]
  - NECROTISING COLITIS [None]
  - TURNER'S SYNDROME [None]
  - FOETAL HEART RATE DECELERATION [None]
  - MATERNAL DRUGS AFFECTING FOETUS [None]
  - BRADYCARDIA [None]
